FAERS Safety Report 5549690-0 (Version None)
Quarter: 2007Q4

REPORT INFORMATION
  Report Type: 
  Country: None (occurrence: None)
  Receive Date: 20071212
  Receipt Date: 20071210
  Transmission Date: 20080405
  Serious: Yes (Other)
  Sender: FDA-Public Use
  Company Number: PHNU2007DE03796

PATIENT
  Age: 69 Year
  Sex: Male
  Weight: 75 kg

DRUGS (8)
  1. RASILEZ [Suspect]
     Indication: HYPERTENSION
     Dosage: 150 MG, QD
     Dates: start: 20071013, end: 20071027
  2. ENALAPRIL [Concomitant]
     Indication: HYPERTENSION
     Dosage: 40 MG/D
  3. FUROSEMIDE [Concomitant]
     Indication: HYPERTENSION
     Dosage: 20 MG/D
     Dates: end: 20071021
  4. KETOKONAZOL [Concomitant]
     Dosage: 200 MG/D
  5. BELOC ZOK [Concomitant]
     Indication: HYPERTENSION
     Dosage: 47.5 MG/D
  6. FELODIPINE [Concomitant]
     Indication: HYPERTENSION
     Dosage: 10 MG/D
  7. MOXONIDINE [Concomitant]
     Indication: HYPERTENSION
     Dosage: 0.6 MG/D
  8. CIPROFLOXACIN [Concomitant]
     Indication: PNEUMONIA
     Dosage: 250 MG/D
     Dates: start: 20071018, end: 20071022

REACTIONS (4)
  - BLOOD CREATININE INCREASED [None]
  - BLOOD UREA INCREASED [None]
  - PNEUMONIA [None]
  - RENAL FAILURE [None]
